FAERS Safety Report 16629305 (Version 10)
Quarter: 2020Q2

REPORT INFORMATION
  Report Type: Report from Study
  Country: JP (occurrence: JP)
  Receive Date: 20190725
  Receipt Date: 20200529
  Transmission Date: 20200713
  Serious: Yes (Hospitalization)
  Sender: FDA-Public Use
  Company Number: JP-EISAI MEDICAL RESEARCH-EC-2019-059575

PATIENT
  Age: 71 Year
  Sex: Female
  Weight: 76.8 kg

DRUGS (15)
  1. FLUTIFORM [Concomitant]
     Active Substance: FLUTICASONE PROPIONATE\FORMOTEROL FUMARATE
     Dates: start: 20190529, end: 20190930
  2. MAGNESIUM OXIDE. [Concomitant]
     Active Substance: MAGNESIUM OXIDE
     Dates: start: 201701
  3. LOCOID [Concomitant]
     Active Substance: HYDROCORTISONE BUTYRATE
     Dates: start: 20190618, end: 20190718
  4. HEPARINOID [Concomitant]
     Active Substance: CHONDROITIN SULFATE (BOVINE)
     Dates: start: 20190509, end: 20190718
  5. ATOZET [Concomitant]
     Active Substance: ATORVASTATIN CALCIUM\EZETIMIBE
     Dates: start: 200701, end: 20190722
  6. NIFEDIPINE. [Concomitant]
     Active Substance: NIFEDIPINE
     Dates: start: 20190528, end: 20190719
  7. METOCLOPRAMIDE. [Concomitant]
     Active Substance: METOCLOPRAMIDE
     Dates: start: 20190613, end: 20190722
  8. PEMBROLIZUMAB. [Suspect]
     Active Substance: PEMBROLIZUMAB
     Route: 041
     Dates: start: 20190716, end: 20190716
  9. THYRADIN-S [Concomitant]
     Active Substance: LEVOTHYROXINE
     Dates: start: 20190522, end: 20190912
  10. MONTELUKAST [Concomitant]
     Active Substance: MONTELUKAST SODIUM
     Dates: start: 20190529, end: 20190930
  11. DERMOVATE [Concomitant]
     Active Substance: CLOBETASOL
     Dates: start: 20190625, end: 20190718
  12. LENVATINIB [Suspect]
     Active Substance: LENVATINIB
     Indication: ENDOMETRIAL CANCER
     Dosage: STARTING DOSE AT 20 MILLIGRAM, FLUCTUATED DOSE
     Route: 048
     Dates: start: 20190423, end: 20190716
  13. LENVATINIB [Suspect]
     Active Substance: LENVATINIB
     Route: 048
     Dates: start: 20190717, end: 20190717
  14. PEMBROLIZUMAB. [Suspect]
     Active Substance: PEMBROLIZUMAB
     Indication: ENDOMETRIAL CANCER
     Route: 041
     Dates: start: 20190423, end: 20190625
  15. THEOPHYLLINE [Concomitant]
     Active Substance: THEOPHYLLINE ANHYDROUS
     Dates: start: 20190529, end: 20190930

REACTIONS (1)
  - Stevens-Johnson syndrome [Recovered/Resolved]

NARRATIVE: CASE EVENT DATE: 20190718
